FAERS Safety Report 22347997 (Version 12)
Quarter: 2024Q1

REPORT INFORMATION
  Report Type: Report from Study
  Country: US (occurrence: US)
  Receive Date: 20230522
  Receipt Date: 20240318
  Transmission Date: 20240410
  Serious: Yes (Other)
  Sender: FDA-Public Use
  Company Number: US-TAKEDA-2021TUS056481

PATIENT
  Age: 9 Year
  Sex: Male

DRUGS (12)
  1. IDURSULFASE [Suspect]
     Active Substance: IDURSULFASE
     Indication: Product used for unknown indication
     Dosage: 15 MILLIGRAM, Q2HR
     Route: 042
  2. IDURSULFASE [Suspect]
     Active Substance: IDURSULFASE
     Dosage: 14 MILLIGRAM, 1/WEEK
     Route: 042
  3. IDURSULFASE [Suspect]
     Active Substance: IDURSULFASE
     Dosage: 1 DOSAGE FORM
     Route: 042
  4. IDURSULFASE [Suspect]
     Active Substance: IDURSULFASE
     Dosage: 15 MILLIGRAM, 1/WEEK
     Route: 042
  5. IDURSULFASE [Suspect]
     Active Substance: IDURSULFASE
     Dosage: 15 MILLIGRAM, 1/WEEK
     Route: 042
  6. IDURSULFASE [Suspect]
     Active Substance: IDURSULFASE
     Dosage: 16 MILLIGRAM, 1/WEEK
     Route: 042
  7. IDURSULFASE [Suspect]
     Active Substance: IDURSULFASE
     Dosage: 16 MILLIGRAM, 1/WEEK
     Route: 042
  8. IDURSULFASE [Suspect]
     Active Substance: IDURSULFASE
     Dosage: 16 MILLIGRAM, 1/WEEK
     Route: 042
  9. IDURSULFASE [Suspect]
     Active Substance: IDURSULFASE
     Dosage: 16 MILLIGRAM, 1/WEEK
     Route: 042
  10. IDURSULFASE [Suspect]
     Active Substance: IDURSULFASE
     Dosage: 16 MILLIGRAM, 1/WEEK
     Route: 042
  11. IDURSULFASE [Suspect]
     Active Substance: IDURSULFASE
     Dosage: UNK UNK, 1/WEEK
     Route: 042
  12. IDURSULFASE [Suspect]
     Active Substance: IDURSULFASE
     Dosage: UNK
     Route: 042

REACTIONS (24)
  - Pulmonary congestion [Unknown]
  - Intellectual disability [Unknown]
  - Tension [Recovering/Resolving]
  - Upper respiratory tract infection [Recovering/Resolving]
  - Muscle tightness [Recovering/Resolving]
  - Gastroenteritis viral [Unknown]
  - Feeling cold [Unknown]
  - Productive cough [Unknown]
  - Heart rate irregular [Unknown]
  - Rales [Unknown]
  - Breath sounds abnormal [Unknown]
  - Carpal tunnel syndrome [Unknown]
  - Rhinovirus infection [Unknown]
  - Obstruction [Unknown]
  - Incontinence [Unknown]
  - Body temperature increased [Unknown]
  - Chills [Unknown]
  - Weight decreased [Unknown]
  - Tremor [Recovering/Resolving]
  - Wheezing [Unknown]
  - Tachycardia [Unknown]
  - Infusion related reaction [Unknown]
  - Pyrexia [Unknown]
  - Headache [Unknown]

NARRATIVE: CASE EVENT DATE: 20231226
